FAERS Safety Report 18644965 (Version 2)
Quarter: 2020Q4

REPORT INFORMATION
  Report Type: Spontaneous
  Country: FR (occurrence: FR)
  Receive Date: 20201221
  Receipt Date: 20201223
  Transmission Date: 20210114
  Serious: Yes (Death, Hospitalization, Other)
  Sender: FDA-Public Use
  Company Number: FR-JNJFOC-20201224085

PATIENT
  Age: 37 Year
  Sex: Male

DRUGS (16)
  1. FLUCYTOSINE. [Concomitant]
     Active Substance: FLUCYTOSINE
     Dates: start: 199503
  2. SULFADIAZINE. [Concomitant]
     Active Substance: SULFADIAZINE
     Route: 065
     Dates: start: 19950210
  3. SPORANOX [Suspect]
     Active Substance: ITRACONAZOLE
     Indication: MENINGITIS CRYPTOCOCCAL
     Dosage: 600 MG, DAILY
     Route: 048
     Dates: start: 19950405, end: 19951108
  4. FLUCONAZOLE. [Suspect]
     Active Substance: FLUCONAZOLE
     Route: 048
     Dates: start: 199503, end: 199506
  5. PYRIMETHAMINE [Concomitant]
     Active Substance: PYRIMETHAMINE
     Dosage: 100 MG, DAILY
     Route: 065
     Dates: start: 19950311, end: 19950326
  6. AMPHOTERICIN B. [Concomitant]
     Active Substance: AMPHOTERICIN B
     Route: 042
     Dates: start: 199503
  7. PREDNISONE. [Concomitant]
     Active Substance: PREDNISONE
     Route: 048
     Dates: start: 19950405
  8. CLONAZEPAM. [Concomitant]
     Active Substance: CLONAZEPAM
     Route: 048
     Dates: start: 19950405, end: 19951030
  9. SULFAMETHOXAZOLE;TRIMETHOPRIM [Concomitant]
     Active Substance: SULFAMETHOXAZOLE\TRIMETHOPRIM
     Route: 048
     Dates: start: 1994, end: 19960109
  10. MISOPROSTOL. [Concomitant]
     Active Substance: MISOPROSTOL
     Route: 048
     Dates: start: 199506
  11. SULFADIAZINE. [Concomitant]
     Active Substance: SULFADIAZINE
     Dates: start: 19950311, end: 19950326
  12. PYRIMETHAMINE [Concomitant]
     Active Substance: PYRIMETHAMINE
     Dosage: 50 MG, DAILY
     Route: 065
     Dates: start: 19950210
  13. CARBAMAZEPINE. [Concomitant]
     Active Substance: CARBAMAZEPINE
     Indication: PRODUCT USED FOR UNKNOWN INDICATION
     Route: 048
     Dates: start: 199503
  14. PIRACETAM [Concomitant]
     Active Substance: PIRACETAM
     Route: 048
     Dates: start: 199508
  15. FLUCONAZOLE. [Suspect]
     Active Substance: FLUCONAZOLE
     Indication: MENINGITIS CRYPTOCOCCAL
     Dosage: 800 MG, DAILY FOR FOUR WEEKS
     Route: 042
     Dates: start: 19941031
  16. FLUCONAZOLE. [Suspect]
     Active Substance: FLUCONAZOLE
     Route: 048
     Dates: start: 199508

REACTIONS (6)
  - Cryptococcosis [Unknown]
  - Drug resistance [Unknown]
  - Off label use [Unknown]
  - Incorrect dose administered [Unknown]
  - Liver function test abnormal [Unknown]
  - Lung disorder [Fatal]

NARRATIVE: CASE EVENT DATE: 19950405
